FAERS Safety Report 9404394 (Version 1)
Quarter: 2013Q3

REPORT INFORMATION
  Report Type: Spontaneous
  Country: US (occurrence: None)
  Receive Date: 20130711
  Receipt Date: 20130711
  Transmission Date: 20140515
  Serious: Yes (Hospitalization)
  Sender: FDA-Public Use
  Company Number: IPC201307-000255

PATIENT
  Age: 69 Year
  Sex: Female

DRUGS (2)
  1. ATENOLOL (ATENOLOL) (ATENOLOL) [Suspect]
  2. AMLODIPINE BESILATE [Suspect]

REACTIONS (7)
  - Suicide attempt [None]
  - Somnolence [None]
  - Vomiting [None]
  - Hypotension [None]
  - Heart rate decreased [None]
  - Hypokalaemia [None]
  - Ventricular fibrillation [None]
